FAERS Safety Report 16499279 (Version 1)
Quarter: 2019Q2

REPORT INFORMATION
  Report Type: Spontaneous
  Country: US (occurrence: US)
  Receive Date: 20190520
  Receipt Date: 20190520
  Transmission Date: 20190711
  Serious: Yes (Other)
  Sender: FDA-Public Use
  Company Number: None

PATIENT
  Age: 47 Year
  Sex: Female
  Weight: 73.03 kg

DRUGS (1)
  1. ERYTHROMYCIN ETHYLSUCCINATE. [Suspect]
     Active Substance: ERYTHROMYCIN ETHYLSUCCINATE
     Indication: IMPAIRED GASTRIC EMPTYING
     Dosage: ?          OTHER DOSE:200/5:6.25ML PER D;?
     Route: 048
     Dates: start: 20190409

REACTIONS (6)
  - Vomiting [None]
  - Abdominal pain [None]
  - Diarrhoea [None]
  - Product substitution issue [None]
  - Abdominal distension [None]
  - Nausea [None]

NARRATIVE: CASE EVENT DATE: 20190409
